FAERS Safety Report 9163671 (Version 1)
Quarter: 2013Q1

REPORT INFORMATION
  Report Type: Spontaneous
  Country: FR (occurrence: FR)
  Receive Date: 20130314
  Receipt Date: 20130314
  Transmission Date: 20140127
  Serious: Yes (Hospitalization)
  Sender: FDA-Public Use
  Company Number: FR-ASTRAZENECA-2013SE15298

PATIENT
  Age: 20343 Day
  Sex: Female

DRUGS (4)
  1. ZOMIGORO [Suspect]
     Indication: MIGRAINE
     Route: 048
     Dates: start: 20121212
  2. EPITOMAX [Concomitant]
     Dosage: 50 MG EVERY MORNING AND 100 MG EVERY EVENING
     Route: 048
     Dates: start: 20090925
  3. TEGRETOL LP [Concomitant]
     Route: 048
     Dates: start: 20090525
  4. LEXOMIL [Concomitant]
     Route: 048
     Dates: start: 201207

REACTIONS (4)
  - Dyspnoea exertional [Recovered/Resolved]
  - Electrocardiogram abnormal [Recovered/Resolved]
  - Chest discomfort [Recovered/Resolved]
  - Palpitations [Recovered/Resolved]
